FAERS Safety Report 15176229 (Version 2)
Quarter: 2018Q4

REPORT INFORMATION
  Report Type: Report from Study
  Country: US (occurrence: US)
  Receive Date: 20180720
  Receipt Date: 20181017
  Transmission Date: 20190204
  Serious: No
  Sender: FDA-Public Use
  Company Number: US-AMGEN-USASL2018090900

PATIENT
  Age: 75 Year
  Sex: Female

DRUGS (1)
  1. REPATHA [Suspect]
     Active Substance: EVOLOCUMAB
     Indication: TYPE IIA HYPERLIPIDAEMIA
     Dosage: 140 MG, Q2WK
     Route: 058

REACTIONS (6)
  - Abdominal distension [Recovered/Resolved]
  - Diarrhoea [Unknown]
  - Injection site bruising [Unknown]
  - Injection site pain [Unknown]
  - Oropharyngeal pain [Unknown]
  - Underdose [Unknown]

NARRATIVE: CASE EVENT DATE: 20180726
